FAERS Safety Report 8804650 (Version 1)
Quarter: 2012Q4

REPORT INFORMATION
  Report Type: 
  Country: US (occurrence: US)
  Receive Date: 20120924
  Receipt Date: 20120924
  Transmission Date: 20130627
  Serious: Yes (Other)
  Sender: FDA-Public Use
  Company Number: US-ROCHE-1102967

PATIENT
  Sex: Female

DRUGS (5)
  1. AVASTIN [Suspect]
     Indication: BREAST CANCER FEMALE
     Route: 065
     Dates: start: 20060213
  2. TAMOXIFEN [Concomitant]
  3. ADRIAMYCIN [Concomitant]
     Route: 065
     Dates: start: 200510
  4. CYTOXAN [Concomitant]
     Route: 065
     Dates: start: 200510
  5. TAXOL [Concomitant]

REACTIONS (1)
  - Disease progression [Unknown]
